FAERS Safety Report 23980594 (Version 2)
Quarter: 2024Q2

REPORT INFORMATION
  Report Type: Spontaneous
  Country: US (occurrence: US)
  Receive Date: 20240617
  Receipt Date: 20240618
  Transmission Date: 20240716
  Serious: Yes (Other)
  Sender: FDA-Public Use
  Company Number: US-SERB S.A.S.-2158194

PATIENT
  Age: 66 Year
  Sex: Female

DRUGS (2)
  1. VISTOGARD [Suspect]
     Active Substance: URIDINE TRIACETATE
     Indication: Overdose
  2. FLUOROURACIL [Suspect]
     Active Substance: FLUOROURACIL

REACTIONS (6)
  - Diarrhoea [Unknown]
  - Nausea [Unknown]
  - Thrombocytopenia [Unknown]
  - Vomiting [Unknown]
  - Hypokalaemia [Unknown]
  - Dehydration [Unknown]
